FAERS Safety Report 16807755 (Version 1)
Quarter: 2019Q3

REPORT INFORMATION
  Report Type: Spontaneous
  Country: PT (occurrence: PT)
  Receive Date: 20190915
  Receipt Date: 20190915
  Transmission Date: 20191005
  Serious: Yes (Other)
  Sender: FDA-Public Use
  Company Number: PT-DENTSPLY-2019SCDP000501

PATIENT

DRUGS (2)
  1. LIDOCAINE. [Suspect]
     Active Substance: LIDOCAINE
     Indication: TRIGEMINAL NEURALGIA
     Dosage: 80 MILLIGRAM
     Route: 042
  2. LIDOCAINE. [Suspect]
     Active Substance: LIDOCAINE
     Dosage: 100 MILLIGRAM
     Route: 042

REACTIONS (2)
  - Bradycardia [Unknown]
  - Transient ischaemic attack [Unknown]
